FAERS Safety Report 20834790 (Version 3)
Quarter: 2022Q3

REPORT INFORMATION
  Report Type: Report from Study
  Country: US (occurrence: US)
  Receive Date: 20220516
  Receipt Date: 20220929
  Transmission Date: 20221026
  Serious: No
  Sender: FDA-Public Use
  Company Number: US-NOVARTISTESTPH-NVSC2022US111091

PATIENT
  Sex: Male
  Weight: 40.8 kg

DRUGS (2)
  1. COSENTYX [Suspect]
     Active Substance: SECUKINUMAB
     Indication: Psoriasis
     Dosage: 75 MG, QW
     Route: 058
     Dates: start: 20220428
  2. COSENTYX [Suspect]
     Active Substance: SECUKINUMAB
     Dosage: 75 MG, QMO
     Route: 058

REACTIONS (2)
  - Injection site pain [Recovered/Resolved]
  - Nasopharyngitis [Recovered/Resolved]
